FAERS Safety Report 15184161 (Version 1)
Quarter: 2018Q3

REPORT INFORMATION
  Report Type: Spontaneous
  Country: US (occurrence: US)
  Receive Date: 20180723
  Receipt Date: 20180723
  Transmission Date: 20181010
  Serious: No
  Sender: FDA-Public Use
  Company Number: US-AMGEN-USASP2018067199

PATIENT

DRUGS (1)
  1. REPATHA [Suspect]
     Active Substance: EVOLOCUMAB
     Indication: PRODUCT USED FOR UNKNOWN INDICATION
     Dosage: UNK
     Route: 065

REACTIONS (13)
  - Peripheral swelling [Unknown]
  - Musculoskeletal disorder [Unknown]
  - Bone disorder [Unknown]
  - Muscle spasms [Unknown]
  - Dysstasia [Unknown]
  - Arthropathy [Unknown]
  - Muscle disorder [Unknown]
  - Back pain [Unknown]
  - Pain in extremity [Unknown]
  - Muscular weakness [Unknown]
  - Balance disorder [Unknown]
  - Back disorder [Unknown]
  - Arthralgia [Unknown]
